FAERS Safety Report 16759204 (Version 1)
Quarter: 2019Q3

REPORT INFORMATION
  Report Type: Report from Study
  Country: US (occurrence: US)
  Receive Date: 20190830
  Receipt Date: 20190830
  Transmission Date: 20191005
  Serious: No
  Sender: FDA-Public Use
  Company Number: US-KYOWAKIRIN-2019BKK013470

PATIENT

DRUGS (1)
  1. CRYSVITA [Suspect]
     Active Substance: BUROSUMAB-TWZA
     Indication: HEREDITARY HYPOPHOSPHATAEMIC RICKETS
     Dosage: 1 MG/KG, MONTHLY
     Route: 065
     Dates: end: 2019

REACTIONS (2)
  - Inappropriate schedule of product administration [Recovered/Resolved]
  - Liver function test increased [Not Recovered/Not Resolved]
